FAERS Safety Report 8124493-1 (Version None)
Quarter: 2012Q1

REPORT INFORMATION
  Report Type: 
  Country: None (occurrence: None)
  Receive Date: 20120209
  Receipt Date: 20120130
  Transmission Date: 20120608
  Serious: Yes (Hospitalization, Other)
  Sender: FDA-Public Use
  Company Number: ES-ELI_LILLY_AND_COMPANY-ES201112007710

PATIENT
  Sex: Female
  Weight: 80 kg

DRUGS (3)
  1. ARAVA [Concomitant]
     Indication: ARTHRITIS
     Dosage: 1 DF, QD
     Route: 048
     Dates: start: 20110808
  2. FORTEO [Suspect]
     Indication: OSTEOPOROSIS
     Dosage: 20 UG, QD
     Route: 058
     Dates: start: 20110729
  3. PREDNISONE [Concomitant]
     Indication: ASTHMA
     Dosage: UNK
     Route: 048
     Dates: start: 20110808

REACTIONS (2)
  - EMPHYSEMA [None]
  - RESPIRATORY TRACT INFECTION [None]
